FAERS Safety Report 7266876-8 (Version None)
Quarter: 2011Q1

REPORT INFORMATION
  Report Type: 
  Country: None (occurrence: None)
  Receive Date: 20110201
  Receipt Date: 20110118
  Transmission Date: 20110831
  Serious: Yes (Life-Threatening, Hospitalization)
  Sender: FDA-Public Use
  Company Number: FR-BAYER-2011-005790

PATIENT
  Sex: Male

DRUGS (27)
  1. BIONOLYTE G 5 [Concomitant]
     Dosage: UNK
     Dates: start: 20091109, end: 20091113
  2. OXYCONTIN [Concomitant]
     Dosage: UNK
     Dates: start: 20091109, end: 20091113
  3. NEUPOGEN [Concomitant]
     Dosage: UNK
     Dates: start: 20091111, end: 20091113
  4. EMEND [Suspect]
     Dosage: 125 MG, QD
     Route: 048
     Dates: start: 20091109, end: 20091111
  5. PRIMPERAN TAB [Concomitant]
     Dosage: UNK
     Dates: start: 20091110, end: 20091113
  6. ORAMORPH SR [Concomitant]
     Dosage: UNK
     Dates: start: 20091110, end: 20091113
  7. HYDROCORTISONE [Concomitant]
     Dosage: UNK
     Dates: start: 20091113, end: 20091113
  8. CIFLOX [Suspect]
     Dosage: 500 MG, QD
     Route: 048
     Dates: start: 20091101
  9. LAROXYL [Suspect]
     Dosage: 1 DF, BID
     Route: 048
     Dates: start: 20091109, end: 20091111
  10. UNCODEABLE ^UNCLASSIFIABLE^ [Suspect]
     Indication: PAIN
     Dosage: 50 MG, TID
     Route: 048
     Dates: start: 20091113, end: 20091113
  11. NEUPOGEN [Concomitant]
     Dosage: UNK
     Dates: start: 20091111, end: 20091111
  12. POLARAMINE [Suspect]
     Dosage: 1 DF, QD
     Route: 042
     Dates: start: 20091113, end: 20091113
  13. ZOPHREN [Concomitant]
     Dosage: UNK
     Dates: start: 20091110, end: 20091113
  14. CARBOPLATIN [Suspect]
     Indication: EXTRAGONADAL PRIMARY GERM CELL TUMOUR MIXED STAGE I
     Dosage: 1300 MG, QD
     Route: 042
     Dates: start: 20091109, end: 20091111
  15. ONDANSETRON [Concomitant]
     Dosage: UNK
     Dates: start: 20091111
  16. TRIFLUCAN [Suspect]
     Dosage: 50 MG, QD
     Route: 048
     Dates: start: 20091101
  17. AUGMENTIN '125' [Suspect]
     Dosage: UNK
     Dates: start: 20091101
  18. LAROXYL [Suspect]
     Dosage: 1 DF, QD
     Route: 048
     Dates: start: 20091110, end: 20091111
  19. NEURONTIN [Suspect]
     Dosage: 1 DF, TID
     Route: 048
     Dates: start: 20091109, end: 20091113
  20. ETOPOSIDE [Suspect]
     Indication: EXTRAGONADAL PRIMARY GERM CELL TUMOUR MIXED STAGE I
     Dosage: 770 MG, QD
     Route: 042
     Dates: start: 20101109, end: 20101111
  21. HALDOL [Suspect]
     Indication: NAUSEA
     Dosage: 2 MG, UNK
     Route: 048
     Dates: start: 20091112, end: 20091113
  22. CONTRAMAL [Suspect]
     Indication: PAIN
     Dosage: UNK
     Route: 048
     Dates: start: 20091113, end: 20091113
  23. UNCODEABLE ^UNCLASSIFIABLE^ [Concomitant]
     Dosage: UNK
     Dates: start: 20091110, end: 20091113
  24. UNCODEABLE ^UNCLASSIFIABLE^ [Concomitant]
     Dosage: UNK
     Dates: start: 20091110, end: 20091111
  25. EMEND [Suspect]
     Dosage: 1 DF, QD
     Route: 048
     Dates: start: 20091110, end: 20091113
  26. OXYCONTIN [Concomitant]
     Dosage: UNK
     Dates: start: 20091109, end: 20091113
  27. LEXOMIL [Concomitant]
     Dosage: UNK
     Dates: start: 20091109, end: 20091113

REACTIONS (3)
  - ILEITIS [None]
  - FEBRILE BONE MARROW APLASIA [None]
  - INTESTINAL OBSTRUCTION [None]
